FAERS Safety Report 18734330 (Version 1)
Quarter: 2021Q1

REPORT INFORMATION
  Report Type: Spontaneous
  Country: ES (occurrence: ES)
  Receive Date: 20210113
  Receipt Date: 20210113
  Transmission Date: 20210419
  Serious: Yes (Life-Threatening, Hospitalization)
  Sender: FDA-Public Use
  Company Number: ES-ACCORD-214282

PATIENT
  Age: 87 Year
  Sex: Female

DRUGS (2)
  1. LORAZEPAM. [Interacting]
     Active Substance: LORAZEPAM
     Route: 048
     Dates: start: 20190816, end: 20201221
  2. QUETIAPINE. [Suspect]
     Active Substance: QUETIAPINE
     Dosage: 0?0?2
     Route: 048
     Dates: start: 20101214, end: 20201214

REACTIONS (6)
  - Aspiration [Recovering/Resolving]
  - Depressed level of consciousness [Recovering/Resolving]
  - Confusional state [Recovering/Resolving]
  - Pneumonia [Recovering/Resolving]
  - Drug interaction [Unknown]
  - Suicide attempt [Unknown]

NARRATIVE: CASE EVENT DATE: 20201221
